FAERS Safety Report 8697960 (Version 2)
Quarter: 2013Q4

REPORT INFORMATION
  Report Type: Spontaneous
  Country: US (occurrence: US)
  Receive Date: 20120801
  Receipt Date: 20131101
  Transmission Date: 20140711
  Serious: No
  Sender: FDA-Public Use
  Company Number: US-009507513-1207USA007229

PATIENT
  Sex: Male

DRUGS (7)
  1. VICTRELIS [Suspect]
     Indication: HEPATITIS C
     Dosage: 800 MG, TID
     Route: 048
     Dates: start: 20120301
  2. PEGASYS [Suspect]
  3. RIBASPHERE [Suspect]
  4. LACTULOSE [Concomitant]
  5. TEKTURNA [Concomitant]
  6. EXFORGE [Concomitant]
  7. CLONAZEPAM [Concomitant]

REACTIONS (1)
  - Phlebitis [Unknown]
